FAERS Safety Report 6542379-0 (Version None)
Quarter: 2010Q1

REPORT INFORMATION
  Report Type: 
  Country: None (occurrence: None)
  Receive Date: 20100119
  Receipt Date: 20100111
  Transmission Date: 20100710
  Serious: Yes (Hospitalization)
  Sender: FDA-Public Use
  Company Number: US-ASTRAZENECA-2010SE01130

PATIENT
  Age: 60 Year
  Sex: Female

DRUGS (15)
  1. NEXIUM [Suspect]
     Indication: GASTROOESOPHAGEAL REFLUX DISEASE
     Route: 048
  2. PRILOSEC DELAYED-RELEASED CAPSULES [Suspect]
     Indication: GASTROOESOPHAGEAL REFLUX DISEASE
     Route: 048
  3. SEROQUEL [Suspect]
     Indication: DEPRESSION
     Route: 048
  4. CELEXA [Concomitant]
  5. SEROCON [Concomitant]
     Dosage: TWO TIMES A DAY
  6. VITAMIN B COMPLEX CAP [Concomitant]
  7. ATENOLOL [Concomitant]
  8. K-DUR [Concomitant]
  9. REMERON [Concomitant]
  10. CALCIUM [Concomitant]
  11. AMBIEN [Concomitant]
  12. THIAMINE [Concomitant]
     Dosage: DAILY
  13. ALLEGRA [Concomitant]
  14. TOPAMAX [Concomitant]
  15. ELAVIL [Concomitant]

REACTIONS (6)
  - BONE DEBRIDEMENT [None]
  - DEPRESSION [None]
  - EATING DISORDER [None]
  - GASTROOESOPHAGEAL REFLUX DISEASE [None]
  - HIP ARTHROPLASTY [None]
  - WEIGHT DECREASED [None]
